FAERS Safety Report 4895091-8 (Version None)
Quarter: 2006Q1

REPORT INFORMATION
  Report Type: 
  Country: None (occurrence: None)
  Receive Date: 20060124
  Receipt Date: 20060110
  Transmission Date: 20060701
  Serious: Yes (Other)
  Sender: FDA-Public Use
  Company Number: GBR-2006-0002058

PATIENT
  Sex: Male

DRUGS (2)
  1. MORPHINE SULFATE [Suspect]
  2. NEURONTIN [Suspect]
     Indication: NEURALGIA
     Dosage: 600 MG, TID, ORAL
     Route: 048

REACTIONS (4)
  - DRUG INTERACTION [None]
  - IRRITABILITY [None]
  - PSYCHOTIC DISORDER [None]
  - THINKING ABNORMAL [None]
